FAERS Safety Report 9235520 (Version 3)
Quarter: 2014Q1

REPORT INFORMATION
  Report Type: Spontaneous
  Country: US (occurrence: None)
  Receive Date: 20121031
  Receipt Date: 20130724
  Transmission Date: 20141002
  Serious: No
  Sender: FDA-Public Use
  Company Number: PHEH2012US011950

PATIENT
  Age: 56 Year
  Sex: Female

DRUGS (7)
  1. GILENYA [Suspect]
     Indication: MULTIPLE SCLEROSIS
     Route: 048
     Dates: start: 20120507
  2. VITAMIN D ( ERGOCALCIFEROL) [Concomitant]
  3. GLIPIZIDE [Concomitant]
  4. BACLOFEN [Concomitant]
  5. NOROXIN (NORFLOXACIN) [Concomitant]
  6. SIMVASTATIN [Concomitant]
  7. LISINOPRIL [Concomitant]

REACTIONS (7)
  - Skin odour abnormal [None]
  - Libido increased [None]
  - Nausea [None]
  - Vision blurred [None]
  - Memory impairment [None]
  - Headache [None]
  - Accidental overdose [None]
